FAERS Safety Report 8012796-0 (Version None)
Quarter: 2011Q4

REPORT INFORMATION
  Report Type: 
  Country: None (occurrence: None)
  Receive Date: 20111223
  Receipt Date: 20111223
  Transmission Date: 20120403
  Serious: Yes (Life-Threatening, Hospitalization, Disabling, Other)
  Sender: FDA-Public Use
  Company Number: None

PATIENT
  Age: 29 Year
  Sex: Male
  Weight: 133.8111 kg

DRUGS (5)
  1. DEPAKOTE [Suspect]
     Indication: CONVULSION
     Dosage: 1000 MG A DAY 047
     Route: 048
     Dates: start: 19950515, end: 19950928
  2. KLONOPIN [Concomitant]
  3. AMBIEN [Concomitant]
  4. THIORIDAZIME [Concomitant]
  5. PAXIL [Concomitant]

REACTIONS (5)
  - DEPRESSED LEVEL OF CONSCIOUSNESS [None]
  - SUICIDE ATTEMPT [None]
  - INSOMNIA [None]
  - WEIGHT INCREASED [None]
  - ACTIVITIES OF DAILY LIVING IMPAIRED [None]
